FAERS Safety Report 24095492 (Version 1)
Quarter: 2024Q3

REPORT INFORMATION
  Report Type: Report from Study
  Country: CO (occurrence: None)
  Receive Date: 20240716
  Receipt Date: 20240716
  Transmission Date: 20241016
  Serious: Yes (Other)
  Sender: ASTRAZENECA
  Company Number: 2019SF21273

PATIENT
  Sex: Female

DRUGS (1)
  1. SYMBICORT [Suspect]
     Active Substance: BUDESONIDE\FORMOTEROL FUMARATE DIHYDRATE
     Indication: Asthma
     Dosage: 320 MCG, EVERY 12 HOURS
     Route: 055

REACTIONS (4)
  - Asphyxia [Unknown]
  - Cough [Unknown]
  - Pain in extremity [Unknown]
  - Intentional product misuse [Unknown]
